FAERS Safety Report 21474084 (Version 1)
Quarter: 2022Q4

REPORT INFORMATION
  Report Type: Spontaneous
  Country: US (occurrence: US)
  Receive Date: 20221018
  Receipt Date: 20221018
  Transmission Date: 20230113
  Serious: Yes (Disabling, Other)
  Sender: FDA-Public Use
  Company Number: US-ALLERGAN-2234310US

PATIENT
  Sex: Female

DRUGS (1)
  1. CELEXA [Suspect]
     Active Substance: CITALOPRAM HYDROBROMIDE
     Indication: Product used for unknown indication

REACTIONS (8)
  - Subarachnoid haemorrhage [Unknown]
  - Deafness [Unknown]
  - Disability [Unknown]
  - Mental disorder [Unknown]
  - Anosmia [Unknown]
  - Ageusia [Unknown]
  - Depressed mood [Unknown]
  - Amnesia [Unknown]

NARRATIVE: CASE EVENT DATE: 20200101
